FAERS Safety Report 15734277 (Version 1)
Quarter: 2018Q4

REPORT INFORMATION
  Report Type: Spontaneous
  Country: US (occurrence: US)
  Receive Date: 20181218
  Receipt Date: 20181218
  Transmission Date: 20190205
  Serious: Yes (Other)
  Sender: FDA-Public Use
  Company Number: US-CIPLA LTD.-2018US23560

PATIENT

DRUGS (3)
  1. NIACIN. [Suspect]
     Active Substance: NIACIN
     Indication: PANCREATITIS ACUTE
     Dosage: UNK
     Route: 065
  2. FENOFIBRATE. [Suspect]
     Active Substance: FENOFIBRATE
     Indication: PANCREATITIS ACUTE
     Dosage: 160 MG, PER DAY
     Route: 065
  3. OMEGA-3 FATTY ACIDS [Suspect]
     Active Substance: OMEGA-3 FATTY ACIDS
     Indication: PANCREATITIS ACUTE
     Dosage: 4 G, PER DAY (CAPSULES)
     Route: 065

REACTIONS (2)
  - Exposure during pregnancy [Unknown]
  - Premature delivery [Unknown]
